FAERS Safety Report 7565615-0 (Version None)
Quarter: 2011Q2

REPORT INFORMATION
  Report Type: 
  Country: None (occurrence: None)
  Receive Date: 20110623
  Receipt Date: 20110608
  Transmission Date: 20111010
  Serious: Yes (Other)
  Sender: FDA-Public Use
  Company Number: US-JNJFOC-20110604391

PATIENT
  Sex: Female
  Weight: 53.07 kg

DRUGS (12)
  1. BENADRYL [Concomitant]
     Indication: PREMEDICATION
     Route: 048
     Dates: start: 20110607
  2. MS CONTIN [Concomitant]
  3. REMICADE [Suspect]
     Route: 042
  4. REMICADE [Suspect]
     Dosage: 2ND DOSE
     Route: 042
     Dates: start: 20110607, end: 20110607
  5. METHOTREXATE [Concomitant]
     Dates: end: 20110425
  6. NORCO [Concomitant]
     Dosage: 10/325 - 2 TABS EVERY 6 HRS PRN
  7. ASPIRIN [Concomitant]
  8. ELAVIL [Concomitant]
  9. SOLU-MEDROL [Concomitant]
     Indication: PREMEDICATION
     Dates: start: 20110607
  10. REMICADE [Suspect]
     Indication: RHEUMATOID ARTHRITIS
     Route: 042
  11. NITROGLYCERIN [Concomitant]
     Route: 060
  12. PREDNISONE [Concomitant]
     Dosage: EVERY AM

REACTIONS (4)
  - INFUSION RELATED REACTION [None]
  - CHILLS [None]
  - HEART RATE INCREASED [None]
  - OXYGEN SATURATION DECREASED [None]
